FAERS Safety Report 6308377-7 (Version None)
Quarter: 2009Q3

REPORT INFORMATION
  Report Type: 
  Country: None (occurrence: None)
  Receive Date: 20090813
  Receipt Date: 20090803
  Transmission Date: 20100115
  Serious: Yes (Other)
  Sender: FDA-Public Use
  Company Number: LB-GENENTECH-288187

PATIENT

DRUGS (1)
  1. AVASTIN [Suspect]
     Indication: OCULAR VASCULAR DISORDER
     Dosage: UNK
     Route: 031

REACTIONS (3)
  - OCULAR HYPERTENSION [None]
  - RETINAL HAEMORRHAGE [None]
  - SUBRETINAL FIBROSIS [None]
